FAERS Safety Report 9791844 (Version 1)
Quarter: 2014Q1

REPORT INFORMATION
  Report Type: Spontaneous
  Country: FR (occurrence: FR)
  Receive Date: 20140102
  Receipt Date: 20140102
  Transmission Date: 20141002
  Serious: Yes (Life-Threatening)
  Sender: FDA-Public Use
  Company Number: FR-BAYER-2013-159269

PATIENT
  Age: 44 Year
  Sex: Female

DRUGS (2)
  1. CIFLOX [Suspect]
     Dosage: UNK
     Route: 065
     Dates: start: 20100930, end: 20101004
  2. AUGMENTIN [Suspect]
     Dosage: UNK
     Route: 065
     Dates: start: 20100930, end: 20101004

REACTIONS (4)
  - Anaphylactic reaction [Recovered/Resolved]
  - Oxygen saturation decreased [Recovered/Resolved]
  - Tryptase increased [Recovered/Resolved]
  - Vomiting [Recovered/Resolved]
